FAERS Safety Report 6332669-9 (Version None)
Quarter: 2009Q3

REPORT INFORMATION
  Report Type: 
  Country: None (occurrence: None)
  Receive Date: 20090828
  Receipt Date: 20090817
  Transmission Date: 20100115
  Serious: Yes (Hospitalization)
  Sender: FDA-Public Use
  Company Number: US-MYLANLABS-2009S1014658

PATIENT
  Age: 53 Year
  Sex: Female

DRUGS (7)
  1. MILNACIPRAN HYDROCHLORIDE [Suspect]
     Indication: FIBROMYALGIA
     Route: 048
     Dates: start: 20090615, end: 20090616
  2. CHANTIX [Suspect]
     Indication: SMOKING CESSATION THERAPY
  3. AMITRIPTYLINE HCL [Suspect]
     Indication: INSOMNIA
     Route: 048
  4. CLONAZEPAM [Suspect]
     Indication: ANXIETY
     Route: 048
  5. WELLBUTRIN XL [Suspect]
     Indication: DEPRESSION
     Route: 048
  6. PERCOCET [Concomitant]
     Indication: PAIN
  7. NORVASC [Concomitant]
     Indication: HYPERTENSION
     Dosage: TABLETS

REACTIONS (1)
  - SEROTONIN SYNDROME [None]
